FAERS Safety Report 25722172 (Version 1)
Quarter: 2025Q3

REPORT INFORMATION
  Report Type: Spontaneous
  Country: US (occurrence: None)
  Receive Date: 20250825
  Receipt Date: 20250825
  Transmission Date: 20251020
  Serious: No
  Sender: FDA-CTU
  Company Number: None

PATIENT
  Age: 50 Year
  Sex: Female
  Weight: 76.95 kg

DRUGS (2)
  1. ZEPBOUND [Suspect]
     Active Substance: TIRZEPATIDE
     Indication: Weight control
     Dates: start: 20250101, end: 20250819
  2. ZEPBOUND [Suspect]
     Active Substance: TIRZEPATIDE
     Indication: Cardiovascular event prophylaxis

REACTIONS (3)
  - Therapy change [None]
  - Alopecia [None]
  - Weight decreased [None]

NARRATIVE: CASE EVENT DATE: 20250401
